FAERS Safety Report 5345031-2 (Version None)
Quarter: 2007Q2

REPORT INFORMATION
  Report Type: 
  Country: None (occurrence: None)
  Receive Date: 20070425
  Receipt Date: 20060925
  Transmission Date: 20071010
  Serious: Yes (Other)
  Sender: FDA-Public Use
  Company Number: 2006-BP-07229BP

PATIENT
  Age: 58 Year
  Sex: Male

DRUGS (1)
  1. FLOMAX [Suspect]
     Indication: BLADDER DISORDER
     Dosage: 0.4 MG (0.4 MG,1 IN 1 D),PO
     Route: 048
     Dates: start: 20060616, end: 20060621

REACTIONS (1)
  - PRIAPISM [None]
